FAERS Safety Report 7166758-6 (Version None)
Quarter: 2010Q4

REPORT INFORMATION
  Report Type: 
  Country: None (occurrence: None)
  Receive Date: 20101203
  Receipt Date: 20101119
  Transmission Date: 20110411
  Serious: Yes (Hospitalization)
  Sender: FDA-Public Use
  Company Number: 2010SP003331

PATIENT
  Age: 71 Year
  Sex: Female
  Weight: 65.8 kg

DRUGS (18)
  1. OMNARIS [Suspect]
     Indication: RHINITIS ALLERGIC
     Dosage: QD; NASAL
     Route: 045
     Dates: start: 20090825
  2. OMNARIS [Suspect]
     Indication: RHINORRHOEA
     Dosage: QD; NASAL
     Route: 045
     Dates: start: 20090825
  3. BLINDED THERAPY [Concomitant]
  4. CLARITIN [Concomitant]
  5. SPIRIVA [Concomitant]
  6. SINGULAIR [Concomitant]
  7. MULTI-VITAMINS [Concomitant]
  8. CALCIUM D [Concomitant]
  9. ALPRAZOLAM [Concomitant]
  10. AMLODIPINE BESYLATE [Concomitant]
  11. METOPROLOL SUCCINATE [Concomitant]
  12. PULMICORT [Concomitant]
  13. VENTOLIN HFA [Concomitant]
  14. TYLENOL EXTRA STRENGTH [Concomitant]
  15. ADVAIR [Concomitant]
  16. INFLUENZA VACCINE [Concomitant]
  17. LOPRESSOR [Concomitant]
  18. POTASSIUM CHLORIDE [Concomitant]

REACTIONS (34)
  - ACUTE RESPIRATORY FAILURE [None]
  - ASTHENIA [None]
  - BLOOD CHLORIDE DECREASED [None]
  - BLOOD PRESSURE DIASTOLIC DECREASED [None]
  - BRONCHITIS [None]
  - CHRONIC OBSTRUCTIVE PULMONARY DISEASE [None]
  - CONDITION AGGRAVATED [None]
  - COUGH [None]
  - DRY MOUTH [None]
  - DYSPNOEA EXERTIONAL [None]
  - EMPHYSEMA [None]
  - FATIGUE [None]
  - FEELING ABNORMAL [None]
  - GLOSSODYNIA [None]
  - HAEMATOCRIT DECREASED [None]
  - HAEMOGLOBIN DECREASED [None]
  - HEADACHE [None]
  - HYPOKALAEMIA [None]
  - HYPONATRAEMIA [None]
  - HYPOXIA [None]
  - LEUKOCYTOSIS [None]
  - MALAISE [None]
  - MYALGIA [None]
  - NASOPHARYNGITIS [None]
  - NAUSEA [None]
  - PAIN [None]
  - PLEURAL EFFUSION [None]
  - PNEUMONIA [None]
  - PYREXIA [None]
  - QRS AXIS ABNORMAL [None]
  - SPUTUM DISCOLOURED [None]
  - SUPRAVENTRICULAR EXTRASYSTOLES [None]
  - TONGUE DISORDER [None]
  - URINARY TRACT INFECTION [None]
